FAERS Safety Report 8826852 (Version 2)
Quarter: 2012Q4

REPORT INFORMATION
  Report Type: Report from Study
  Country: GB (occurrence: GB)
  Receive Date: 20121005
  Receipt Date: 20121108
  Transmission Date: 20130627
  Serious: Yes (Hospitalization)
  Sender: FDA-Public Use
  Company Number: GB-PFIZER INC-2012239774

PATIENT
  Age: 40 Year
  Sex: Female
  Weight: 58 kg

DRUGS (5)
  1. CYCLOPHOSPHAMIDE [Suspect]
     Dosage: 800 mg, UNK
     Dates: start: 20120621
  2. EPIRUBICIN HCL [Suspect]
     Dosage: 160 mg, UNK
     Dates: start: 20120621
  3. FLUOROURACIL [Suspect]
     Dosage: 800 mg, UNK
     Dates: start: 20120621
  4. DOCETAXEL [Suspect]
     Dosage: 160 mg, (cycle 1)
     Dates: start: 20120411
  5. BEVACIZUMAB [Suspect]
     Dosage: 875 mg, (cycle 1)
     Dates: start: 20120411

REACTIONS (3)
  - Myalgia [Recovered/Resolved]
  - Bone pain [Recovered/Resolved]
  - Neutropenia [Not Recovered/Not Resolved]
